FAERS Safety Report 6230358-2 (Version None)
Quarter: 2009Q2

REPORT INFORMATION
  Report Type: 
  Country: None (occurrence: None)
  Receive Date: 20090611
  Receipt Date: 20090608
  Transmission Date: 20091009
  Serious: Yes (Hospitalization)
  Sender: FDA-Public Use
  Company Number: PAR_02384_2008

PATIENT
  Sex: Female
  Weight: 40 kg

DRUGS (1)
  1. MESALAMINE   OR LIALDA (REFERENCE DRUG) VS.PLACEBO [Suspect]
     Indication: COLITIS ULCERATIVE
     Dosage: 2 DF QD ORAL
     Route: 048
     Dates: start: 20080905, end: 20081014

REACTIONS (5)
  - ABDOMINAL PAIN LOWER [None]
  - ANXIETY [None]
  - HAEMORRHAGE [None]
  - URETHRAL MEATUS STENOSIS [None]
  - URINARY RETENTION [None]
